FAERS Safety Report 7756653-3 (Version None)
Quarter: 2011Q3

REPORT INFORMATION
  Report Type: 
  Country: None (occurrence: None)
  Receive Date: 20110916
  Receipt Date: 20110914
  Transmission Date: 20111222
  Serious: Yes (Other)
  Sender: FDA-Public Use
  Company Number: AU-PFIZER INC-2011182731

PATIENT
  Age: 71 Year
  Sex: Female

DRUGS (7)
  1. SALBUTAMOL [Concomitant]
     Indication: CHRONIC OBSTRUCTIVE PULMONARY DISEASE
     Dosage: AS NEEDED
  2. METOPROLOL [Concomitant]
     Dosage: 12.5 MG, 2X/DAY
     Route: 048
  3. DOTHIEPIN HYDROCHLORIDE [Concomitant]
     Indication: DEPRESSION
     Dosage: 150 MG, 1X/DAY AT NIGHT
     Route: 048
  4. VARENICLINE TARTRATE [Suspect]
     Indication: SMOKING CESSATION THERAPY
     Dosage: UNK
     Route: 048
     Dates: start: 20110505, end: 20110513
  5. ASPIRIN [Concomitant]
     Dosage: 100 MG, UNK
     Route: 048
  6. CRESTOR [Concomitant]
     Indication: BLOOD CHOLESTEROL INCREASED
     Dosage: 10 MG, 1X/DAY
     Route: 048
  7. NEXIUM [Concomitant]
     Dosage: 40 MG, 1X/DAY
     Route: 048

REACTIONS (4)
  - DEPRESSION [None]
  - COGNITIVE DISORDER [None]
  - TEARFULNESS [None]
  - SUICIDAL IDEATION [None]
